FAERS Safety Report 5600702-5 (Version None)
Quarter: 2008Q1

REPORT INFORMATION
  Report Type: 
  Country: None (occurrence: None)
  Receive Date: 20080123
  Receipt Date: 20080111
  Transmission Date: 20080703
  Serious: Yes (Hospitalization)
  Sender: FDA-Public Use
  Company Number: FR-PFIZER INC-2008004799

PATIENT
  Sex: Female
  Weight: 3.08 kg

DRUGS (4)
  1. ZOLOFT [Suspect]
  2. RISPERDAL [Suspect]
  3. TERCIAN [Suspect]
  4. SULPIRIDE [Concomitant]

REACTIONS (2)
  - BRADYCARDIA NEONATAL [None]
  - DRUG EXPOSURE DURING PREGNANCY [None]
